FAERS Safety Report 9387106 (Version 1)
Quarter: 2013Q3

REPORT INFORMATION
  Report Type: Spontaneous
  Country: BE (occurrence: BE)
  Receive Date: 20130708
  Receipt Date: 20130708
  Transmission Date: 20140515
  Serious: Yes (Death, Other)
  Sender: FDA-Public Use
  Company Number: PHHY2013BE069685

PATIENT
  Age: 58 Year
  Sex: Male

DRUGS (11)
  1. TEMOZOLOMIDE [Suspect]
     Indication: GLIOBLASTOMA
     Dosage: 75 MG/M2, UNK
     Dates: start: 201005
  2. TEMOZOLOMIDE [Suspect]
     Dosage: 150 MG/M2, UNK
     Dates: start: 201009
  3. TEMOZOLOMIDE [Suspect]
     Dosage: 100 MG/M2, 14 CYCLES
     Dates: start: 201011, end: 201112
  4. AMOXICILLIN-CLAVULANIC ACID [Suspect]
     Indication: PNEUMONIA
  5. SULFAMETHOXAZOLE+TRIMETHOPRIM [Suspect]
  6. DOXORUBICIN [Suspect]
     Indication: GLIOBLASTOMA
  7. VINCRISTINE [Suspect]
     Indication: GLIOBLASTOMA
  8. PREDNISONE [Suspect]
     Indication: GLIOBLASTOMA
  9. CYCLOPHOSPHAMIDE [Suspect]
     Indication: GLIOBLASTOMA
  10. RITUXIMAB [Suspect]
     Indication: GLIOBLASTOMA
  11. RADIOTHERAPY [Concomitant]
     Indication: GLIOBLASTOMA
     Dosage: 60 GY, IN 30 FRACTIONS

REACTIONS (25)
  - Death [Fatal]
  - Diffuse large B-cell lymphoma [Unknown]
  - Myelodysplastic syndrome [Unknown]
  - Bone marrow toxicity [Unknown]
  - Leukopenia [Unknown]
  - Lymphopenia [Unknown]
  - Neutropenia [Recovered/Resolved]
  - Pyrexia [Unknown]
  - Glioblastoma [Unknown]
  - Epilepsy [Unknown]
  - Amnesia [Unknown]
  - Headache [Unknown]
  - Herpes zoster [Unknown]
  - Cytomegalovirus infection [Unknown]
  - Epstein-Barr virus infection [Unknown]
  - Eye infection [Unknown]
  - Pneumonia [Unknown]
  - Rhinorrhoea [Unknown]
  - Sinusitis [Unknown]
  - Nasal abscess [Unknown]
  - Dysarthria [Unknown]
  - Exophthalmos [Unknown]
  - Malignant neoplasm progression [Unknown]
  - Drug intolerance [Unknown]
  - Drug ineffective [Unknown]
